FAERS Safety Report 16233381 (Version 3)
Quarter: 2019Q2

REPORT INFORMATION
  Report Type: Report from Study
  Country: US (occurrence: US)
  Receive Date: 20190424
  Receipt Date: 20190523
  Transmission Date: 20190711
  Serious: Yes (Other)
  Sender: FDA-Public Use
  Company Number: US-HORIZON-VIM-0200-2019

PATIENT
  Age: 40 Year
  Sex: Male

DRUGS (1)
  1. VIMOVO [Suspect]
     Active Substance: ESOMEPRAZOLE MAGNESIUM\NAPROXEN
     Indication: MUSCLE SPASMS
     Dosage: 1 TABLET TWICE DAILY
     Dates: start: 20190416, end: 20190416

REACTIONS (4)
  - Cough [Unknown]
  - Mouth swelling [Not Recovered/Not Resolved]
  - Off label use [Recovered/Resolved]
  - Lip swelling [Not Recovered/Not Resolved]

NARRATIVE: CASE EVENT DATE: 20190416
